FAERS Safety Report 4287217-4 (Version None)
Quarter: 2004Q1

REPORT INFORMATION
  Report Type: 
  Country: None (occurrence: None)
  Receive Date: 20040126
  Receipt Date: 20031106
  Transmission Date: 20041129
  Serious: No
  Sender: FDA-Public Use
  Company Number: USA031151959

PATIENT
  Sex: Male

DRUGS (2)
  1. FORTEO [Suspect]
  2. SYNTHROID [Concomitant]

REACTIONS (1)
  - BLOOD THYROID STIMULATING HORMONE INCREASED [None]
